APPROVED DRUG PRODUCT: OXCARBAZEPINE
Active Ingredient: OXCARBAZEPINE
Strength: 150MG
Dosage Form/Route: TABLET;ORAL
Application: A077795 | Product #001
Applicant: HIKMA PHARMACEUTICALS USA INC
Approved: Oct 9, 2007 | RLD: No | RS: No | Type: DISCN